FAERS Safety Report 4877764-6 (Version None)
Quarter: 2006Q1

REPORT INFORMATION
  Report Type: 
  Country: None (occurrence: None)
  Receive Date: 20060111
  Receipt Date: 20060103
  Transmission Date: 20060701
  Serious: Yes (Hospitalization)
  Sender: FDA-Public Use
  Company Number: US-MERCK-0601USA00429

PATIENT
  Age: 41 Year
  Sex: Male

DRUGS (4)
  1. ZOCOR [Suspect]
     Route: 048
     Dates: end: 20040616
  2. ADDERALL TABLETS [Concomitant]
     Route: 048
  3. CELEXA [Concomitant]
     Route: 048
  4. DIOVAN HCT [Concomitant]
     Route: 048

REACTIONS (8)
  - DIZZINESS [None]
  - DYSPNOEA [None]
  - HYPOKALAEMIA [None]
  - HYPOVOLAEMIA [None]
  - NEPHROLITHIASIS [None]
  - PARAESTHESIA [None]
  - RHABDOMYOLYSIS [None]
  - WHITE BLOOD CELL COUNT INCREASED [None]
